FAERS Safety Report 14431065 (Version 1)
Quarter: 2018Q1

REPORT INFORMATION
  Report Type: Spontaneous
  Country: JP (occurrence: JP)
  Receive Date: 20180124
  Receipt Date: 20180124
  Transmission Date: 20180509
  Serious: Yes (Other)
  Sender: FDA-Public Use
  Company Number: JP-ACCORD-062795

PATIENT
  Age: 42 Year
  Sex: Female

DRUGS (4)
  1. METHYLPREDNISOLONE. [Suspect]
     Active Substance: METHYLPREDNISOLONE
     Indication: FOLLICULAR DENDRITIC CELL SARCOMA
  2. CISPLATIN. [Suspect]
     Active Substance: CISPLATIN
     Indication: FOLLICULAR DENDRITIC CELL SARCOMA
  3. CYTARABINE/CYTARABINE HYDROCHLORIDE/CYTARABINE OCFOSFATE [Suspect]
     Active Substance: CYTARABINE
     Indication: FOLLICULAR DENDRITIC CELL SARCOMA
  4. ETOPOSIDE. [Suspect]
     Active Substance: ETOPOSIDE
     Indication: FOLLICULAR DENDRITIC CELL SARCOMA

REACTIONS (4)
  - Vomiting [Unknown]
  - Nausea [Unknown]
  - Renal impairment [Unknown]
  - Fatigue [Unknown]
